FAERS Safety Report 19570886 (Version 1)
Quarter: 2021Q3

REPORT INFORMATION
  Report Type: Spontaneous
  Country: FR (occurrence: FR)
  Receive Date: 20210716
  Receipt Date: 20210716
  Transmission Date: 20211014
  Serious: Yes (Hospitalization)
  Sender: FDA-Public Use
  Company Number: FR-ASTRAZENECA-2021A609149

PATIENT
  Age: 70 Year
  Sex: Female

DRUGS (10)
  1. FASLODEX [Suspect]
     Active Substance: FULVESTRANT
     Dosage: 250 MG/5 ML, SOLUTION INJECTABLE
     Route: 030
     Dates: start: 201602
  2. CHLORTALIDONE [Concomitant]
     Active Substance: CHLORTHALIDONE
  3. LOVENOX [Concomitant]
     Active Substance: ENOXAPARIN SODIUM
  4. FENTANYL. [Concomitant]
     Active Substance: FENTANYL
  5. PANTOPRAZOLE [Concomitant]
     Active Substance: PANTOPRAZOLE
  6. VERZENIOS [Suspect]
     Active Substance: ABEMACICLIB
     Indication: INVASIVE DUCTAL BREAST CARCINOMA
     Dosage: 100 MG 2X/J
     Route: 048
     Dates: start: 20210517, end: 20210614
  7. ATENOLOL. [Concomitant]
     Active Substance: ATENOLOL
  8. CHLORHYDRATE DE LERCANIDIPINE [Concomitant]
     Active Substance: LERCANIDIPINE HYDROCHLORIDE
  9. PREGABALINE [Concomitant]
     Active Substance: PREGABALIN
  10. LEVOTHYROX [Concomitant]
     Active Substance: LEVOTHYROXINE

REACTIONS (2)
  - Renal impairment [Recovering/Resolving]
  - Blood creatinine increased [Recovering/Resolving]

NARRATIVE: CASE EVENT DATE: 20210528
